FAERS Safety Report 17002936 (Version 1)
Quarter: 2019Q4

REPORT INFORMATION
  Report Type: Spontaneous
  Country: ES (occurrence: ES)
  Receive Date: 20191107
  Receipt Date: 20191107
  Transmission Date: 20200122
  Serious: Yes (Hospitalization)
  Sender: FDA-Public Use
  Company Number: ES-TEVA-2019-ES-1132531

PATIENT
  Age: 52 Year
  Sex: Female

DRUGS (2)
  1. ENALAPRIL (2142A) [Suspect]
     Active Substance: ENALAPRIL
     Route: 048
     Dates: start: 201909, end: 201910
  2. ACICLOVIR (201A) [Suspect]
     Active Substance: ACYCLOVIR
     Route: 042
     Dates: start: 20191003, end: 20191009

REACTIONS (1)
  - Acute kidney injury [Recovering/Resolving]

NARRATIVE: CASE EVENT DATE: 20191009
